FAERS Safety Report 19022125 (Version 2)
Quarter: 2021Q2

REPORT INFORMATION
  Report Type: Spontaneous
  Country: NL (occurrence: NL)
  Receive Date: 20210318
  Receipt Date: 20210423
  Transmission Date: 20210717
  Serious: Yes (Other)
  Sender: FDA-Public Use
  Company Number: NL-JNJFOC-20210331625

PATIENT
  Age: 34 Year
  Sex: Male

DRUGS (7)
  1. TRAMADOL HCL/PARACETAMOL AUROBINDO [Suspect]
     Active Substance: ACETAMINOPHEN\TRAMADOL HYDROCHLORIDE
     Indication: PAIN IN EXTREMITY
     Dosage: UNK
     Route: 048
     Dates: start: 2019, end: 2019
  2. AMITRIPTYLINE HCL [Concomitant]
     Active Substance: AMITRIPTYLINE
     Indication: HEADACHE
     Dosage: 10 MILLIGRAM, 2/DAY
     Route: 048
     Dates: start: 20210119
  3. OMEPRAZOLE. [Concomitant]
     Active Substance: OMEPRAZOLE
     Indication: PRODUCT USED FOR UNKNOWN INDICATION
     Dosage: 40 MILLIGRAM, 1/DAY
     Route: 048
     Dates: start: 20150202
  4. DICLOFENAC [Concomitant]
     Active Substance: DICLOFENAC
     Indication: PRODUCT USED FOR UNKNOWN INDICATION
     Dosage: 100 MILLIGRAM, 1/DAY
     Route: 054
     Dates: start: 20101207
  5. TRAMADOL/APAP [Suspect]
     Active Substance: ACETAMINOPHEN\TRAMADOL
     Indication: PAIN IN EXTREMITY
     Dosage: 1 DOSAGE FORM, 2/DAY
     Route: 048
     Dates: start: 20110606
  6. TRAMADOL HCL/PARACETAMOL TEVA [Suspect]
     Active Substance: ACETAMINOPHEN\TRAMADOL HYDROCHLORIDE
     Indication: PAIN IN EXTREMITY
     Dosage: UNK
     Route: 048
     Dates: start: 20210224, end: 20210305
  7. CROMOGLICIC ACID [Concomitant]
     Active Substance: CROMOLYN
     Indication: PRODUCT USED FOR UNKNOWN INDICATION
     Dosage: UNK UNK, AS NEEDED
     Route: 045
     Dates: start: 20090305

REACTIONS (11)
  - Vomiting [Recovered/Resolved]
  - Dizziness [Recovered/Resolved]
  - Thrombocytopenia [Recovered/Resolved]
  - Impaired healing [Unknown]
  - Vision blurred [Recovered/Resolved]
  - Poor quality sleep [Unknown]
  - Wound [Unknown]
  - Gastric disorder [Recovered/Resolved]
  - Headache [Recovered/Resolved]
  - Pain [Recovered/Resolved]
  - Wound haemorrhage [Unknown]

NARRATIVE: CASE EVENT DATE: 20130606
